FAERS Safety Report 9064708 (Version 2)
Quarter: 2013Q1

REPORT INFORMATION
  Report Type: Spontaneous
  Country: IT (occurrence: IT)
  Receive Date: 20130130
  Receipt Date: 20130305
  Transmission Date: 20140127
  Serious: Yes (Other)
  Sender: FDA-Public Use
  Company Number: IT-BAYER-2013-011946

PATIENT
  Age: 51 Year
  Sex: Female

DRUGS (2)
  1. AVALOX [Suspect]
     Indication: SINUSITIS
     Dosage: 400 MG, QD
     Route: 048
     Dates: start: 20130123, end: 20130123
  2. TACHIFLUDEC [Concomitant]
     Dosage: UNK

REACTIONS (2)
  - Generalised oedema [Recovered/Resolved]
  - Burning sensation [Recovered/Resolved]
